FAERS Safety Report 4624999-3 (Version None)
Quarter: 2005Q2

REPORT INFORMATION
  Report Type: 
  Country: None (occurrence: None)
  Receive Date: 20050325
  Receipt Date: 20050127
  Transmission Date: 20051028
  Serious: No
  Sender: FDA-Public Use
  Company Number: USA050189366

PATIENT
  Age: 67 Year
  Sex: Female

DRUGS (4)
  1. FORTEO [Suspect]
     Indication: OSTEOPOROSIS
     Dosage: 20 UG/1 IN THE MORNING
     Dates: start: 20040701
  2. CALCIUM GLUCONATE [Concomitant]
  3. VITAMIN D [Concomitant]
  4. LEVOXYL [Concomitant]

REACTIONS (5)
  - DYSPEPSIA [None]
  - FLATULENCE [None]
  - INITIAL INSOMNIA [None]
  - SLEEP DISORDER [None]
  - SLEEP WALKING [None]
